FAERS Safety Report 6618695-0 (Version None)
Quarter: 2010Q1

REPORT INFORMATION
  Report Type: 
  Country: None (occurrence: None)
  Receive Date: 20100305
  Receipt Date: 20100305
  Transmission Date: 20100710
  Serious: Yes (Other)
  Sender: FDA-Public Use
  Company Number: None

PATIENT
  Age: 80 Year
  Sex: Female
  Weight: 46.2669 kg

DRUGS (1)
  1. AMLODIPINE [Suspect]
     Indication: HYPERTENSION
     Dosage: 5 MG DAILY ORAL APPROX 2 WKS
     Route: 048

REACTIONS (8)
  - BLOOD PRESSURE INCREASED [None]
  - CHEST PAIN [None]
  - DYSPEPSIA [None]
  - HEADACHE [None]
  - HEART RATE IRREGULAR [None]
  - INCORRECT DOSE ADMINISTERED [None]
  - REACTION TO DRUG EXCIPIENTS [None]
  - TINNITUS [None]
